FAERS Safety Report 15470902 (Version 1)
Quarter: 2018Q4

REPORT INFORMATION
  Report Type: Spontaneous
  Country: US (occurrence: US)
  Receive Date: 20181006
  Receipt Date: 20181006
  Transmission Date: 20190205
  Serious: Yes (Life-Threatening, Hospitalization)
  Sender: FDA-Public Use
  Company Number: US-BRISTOL-MYERS SQUIBB COMPANY-BMS-2018-090343

PATIENT
  Sex: Male
  Weight: 44.4 kg

DRUGS (1)
  1. SPRYCEL [Suspect]
     Active Substance: DASATINIB
     Indication: CHRONIC MYELOID LEUKAEMIA
     Dosage: UNK UNK, QD
     Route: 048
     Dates: start: 201803, end: 201804

REACTIONS (7)
  - Dyspnoea [Unknown]
  - Platelet count increased [Unknown]
  - White blood cell count abnormal [Unknown]
  - Red blood cell count increased [Unknown]
  - Pleural effusion [Unknown]
  - Pyrexia [Unknown]
  - Blood pressure abnormal [Unknown]
